FAERS Safety Report 12278700 (Version 7)
Quarter: 2016Q4

REPORT INFORMATION
  Report Type: Report from Study
  Country: US (occurrence: US)
  Receive Date: 20160418
  Receipt Date: 20161229
  Transmission Date: 20170207
  Serious: Yes (Hospitalization)
  Sender: FDA-Public Use
  Company Number: US-ACTELION-A-US2016-134412

PATIENT
  Age: 68 Year
  Sex: Female

DRUGS (9)
  1. ASCORBIC ACID. [Concomitant]
     Active Substance: ASCORBIC ACID
     Dosage: 500 MG, UNK
  2. ADCIRCA [Concomitant]
     Active Substance: TADALAFIL
  3. TYVASO [Concomitant]
     Active Substance: TREPROSTINIL
  4. VITAMIN D3 [Concomitant]
     Active Substance: CHOLECALCIFEROL
     Dosage: 1000 U, UNK
  5. CELEXA [Concomitant]
     Active Substance: CITALOPRAM HYDROBROMIDE
     Dosage: 10 MG, UNK
  6. OPSUMIT [Suspect]
     Active Substance: MACITENTAN
     Indication: PULMONARY ARTERIAL HYPERTENSION
     Dosage: 10 MG, QD
     Route: 048
     Dates: start: 20150322
  7. DIPROLENE [Concomitant]
     Active Substance: BETAMETHASONE DIPROPIONATE
     Dosage: 0.05% CREAM
  8. DILTIAZEM. [Concomitant]
     Active Substance: DILTIAZEM
  9. AZELAIC ACID. [Concomitant]
     Active Substance: AZELAIC ACID
     Dosage: 15% TOPICAL GEL
     Route: 061

REACTIONS (12)
  - Infection [Unknown]
  - Cholecystectomy [Unknown]
  - Nausea [Recovered/Resolved]
  - Pyrexia [Unknown]
  - Acute leukaemia [Not Recovered/Not Resolved]
  - Cholecystitis acute [Recovered/Resolved]
  - Oedema peripheral [Recovered/Resolved]
  - Thrombocytopenia [Not Recovered/Not Resolved]
  - Anaemia [Not Recovered/Not Resolved]
  - Vomiting [Recovered/Resolved]
  - Petechiae [Not Recovered/Not Resolved]
  - Abdominal pain [Recovered/Resolved]

NARRATIVE: CASE EVENT DATE: 20160314
